FAERS Safety Report 20817924 (Version 1)
Quarter: 2022Q2

REPORT INFORMATION
  Report Type: Spontaneous
  Country: US (occurrence: None)
  Receive Date: 20220511
  Receipt Date: 20220511
  Transmission Date: 20220721
  Serious: Yes (Hospitalization)
  Sender: FDA-Public Use
  Company Number: None

PATIENT
  Age: 38 Year
  Sex: Male
  Weight: 57.6 kg

DRUGS (1)
  1. BEBTELOVIMAB [Suspect]
     Active Substance: BEBTELOVIMAB
     Indication: COVID-19
     Dosage: FREQUENCY : ONCE;?
     Route: 042
     Dates: start: 20220510, end: 20220510

REACTIONS (10)
  - Chest pain [None]
  - Anxiety [None]
  - Anxiety [None]
  - Dyspnoea [None]
  - Chills [None]
  - Pallor [None]
  - Hypotension [None]
  - Hypertension [None]
  - Heart rate decreased [None]
  - Infusion related reaction [None]

NARRATIVE: CASE EVENT DATE: 20220510
